FAERS Safety Report 9601784 (Version 1)
Quarter: 2013Q4

REPORT INFORMATION
  Report Type: Spontaneous
  Country: US (occurrence: US)
  Receive Date: 20131007
  Receipt Date: 20131007
  Transmission Date: 20140711
  Serious: Yes (Hospitalization)
  Sender: FDA-Public Use
  Company Number: US-BAYER-2013-120408

PATIENT
  Age: 21 Year
  Sex: Female

DRUGS (2)
  1. YASMIN [Suspect]
     Dosage: UNK
     Dates: start: 200512
  2. LEVAQUIN [Concomitant]
     Dosage: 500 MG, UNK

REACTIONS (1)
  - Pulmonary embolism [None]
